FAERS Safety Report 10162395 (Version 1)
Quarter: 2014Q2

REPORT INFORMATION
  Report Type: Spontaneous
  Country: RS (occurrence: RS)
  Receive Date: 20140509
  Receipt Date: 20140509
  Transmission Date: 20141212
  Serious: Yes (Hospitalization)
  Sender: FDA-Public Use
  Company Number: RS-ACTAVIS-2014-08991

PATIENT
  Age: 45 Year
  Sex: Female

DRUGS (4)
  1. DOCETAXEL (UNKNOWN) [Suspect]
     Indication: BREAST CANCER FEMALE
     Dosage: 80 MG, 1/ THREE WEEKS
     Route: 042
  2. DOCETAXEL (UNKNOWN) [Suspect]
     Dosage: 20 UNK, UNK
     Route: 042
  3. DEXASON                            /00016001/ [Concomitant]
     Indication: BREAST CANCER FEMALE
     Dosage: 4 MG, UNK
     Route: 042
  4. RANITIDIN [Concomitant]
     Indication: BREAST CANCER FEMALE
     Dosage: 50 MG, UNK
     Route: 042

REACTIONS (4)
  - Nausea [Recovered/Resolved]
  - Abdominal pain upper [Recovered/Resolved]
  - Hyperaemia [Recovered/Resolved]
  - Pruritus [Recovered/Resolved]
